FAERS Safety Report 9919650 (Version 1)
Quarter: 2014Q1

REPORT INFORMATION
  Report Type: Spontaneous
  Country: US (occurrence: US)
  Receive Date: 20140224
  Receipt Date: 20140224
  Transmission Date: 20141002
  Serious: Yes (Other)
  Sender: FDA-Public Use
  Company Number: US-ABBVIE-14P-163-1202960-00

PATIENT
  Age: 54 Year
  Sex: Female
  Weight: 63.56 kg

DRUGS (7)
  1. HUMIRA [Suspect]
     Indication: CROHN^S DISEASE
     Dates: start: 2012
  2. HEPATITIS VACCINE NOS [Interacting]
     Indication: IMMUNISATION
     Route: 050
     Dates: start: 201402, end: 201402
  3. SHINGLES SHOT [Interacting]
     Indication: IMMUNISATION
     Route: 050
     Dates: start: 20140212, end: 20140212
  4. TYPHOID VACCINE [Interacting]
     Indication: IMMUNISATION
     Route: 050
  5. AZATHIOPRINE [Concomitant]
     Indication: CROHN^S DISEASE
  6. FISH OIL [Concomitant]
     Indication: SUPPLEMENTATION THERAPY
  7. MULTIVITAMIN [Concomitant]
     Indication: VITAMIN SUPPLEMENTATION

REACTIONS (13)
  - Thirst [Recovered/Resolved]
  - Vomiting [Recovered/Resolved]
  - Muscle twitching [Recovered/Resolved]
  - Screaming [Recovered/Resolved]
  - Dyspnoea [Recovered/Resolved]
  - Dyskinesia [Recovered/Resolved]
  - Vertigo [Recovered/Resolved]
  - Dehydration [Recovered/Resolved]
  - Foreign body [Recovered/Resolved]
  - Convulsion [Unknown]
  - Somnolence [Not Recovered/Not Resolved]
  - Headache [Recovering/Resolving]
  - Alcohol poisoning [Recovered/Resolved]
